FAERS Safety Report 18996817 (Version 1)
Quarter: 2021Q1

REPORT INFORMATION
  Report Type: Spontaneous
  Country: US (occurrence: US)
  Receive Date: 20210311
  Receipt Date: 20210311
  Transmission Date: 20210420
  Serious: No
  Sender: FDA-Public Use
  Company Number: US-HIKMA PHARMACEUTICALS USA INC.-US-H14001-20-04076

PATIENT
  Age: 67 Year
  Sex: Male
  Weight: 56.69 kg

DRUGS (2)
  1. ERYTHROMYCIN. [Concomitant]
     Active Substance: ERYTHROMYCIN
     Indication: PRODUCT USED FOR UNKNOWN INDICATION
     Route: 065
     Dates: start: 20200824
  2. FLUTICASONE. [Suspect]
     Active Substance: FLUTICASONE
     Indication: RHINORRHOEA
     Route: 045
     Dates: start: 202005

REACTIONS (2)
  - Expired product administered [Not Recovered/Not Resolved]
  - Drug ineffective [Not Recovered/Not Resolved]
